FAERS Safety Report 7704121-7 (Version None)
Quarter: 2011Q3

REPORT INFORMATION
  Report Type: 
  Country: None (occurrence: None)
  Receive Date: 20110823
  Receipt Date: 20110812
  Transmission Date: 20111222
  Serious: Yes (Hospitalization, Other)
  Sender: FDA-Public Use
  Company Number: BR-BAXTER-2011BH026429

PATIENT
  Age: 10 Year
  Sex: Female
  Weight: 44 kg

DRUGS (2)
  1. GAMMAGARD LIQUID [Suspect]
     Indication: PRIMARY IMMUNODEFICIENCY SYNDROME
     Route: 042
     Dates: start: 20110712, end: 20110712
  2. GAMMAGARD LIQUID [Suspect]
     Indication: HYPOGAMMAGLOBULINAEMIA
     Route: 042
     Dates: start: 20110712, end: 20110712

REACTIONS (5)
  - RASH ERYTHEMATOUS [None]
  - HYPERAEMIA [None]
  - RASH [None]
  - URTICARIA [None]
  - PRURITUS [None]
